FAERS Safety Report 21271847 (Version 1)
Quarter: 2022Q3

REPORT INFORMATION
  Report Type: Report from Study
  Country: GB (occurrence: GB)
  Receive Date: 20220830
  Receipt Date: 20220830
  Transmission Date: 20221026
  Serious: Yes (Other)
  Sender: FDA-Public Use
  Company Number: GB-ABBVIE-22K-167-4521812-00

PATIENT
  Age: 76 Year

DRUGS (2)
  1. CARBIDOPA\LEVODOPA [Suspect]
     Active Substance: CARBIDOPA\LEVODOPA
     Indication: Product used for unknown indication
     Route: 050
  2. CARBIDOPA\LEVODOPA [Suspect]
     Active Substance: CARBIDOPA\LEVODOPA

REACTIONS (6)
  - Volvulus [Unknown]
  - Arrhythmia [Unknown]
  - On and off phenomenon [Unknown]
  - Balance disorder [Unknown]
  - Dysarthria [Unknown]
  - Dyskinesia [Unknown]

NARRATIVE: CASE EVENT DATE: 20220501
